FAERS Safety Report 5706931-4 (Version None)
Quarter: 2008Q2

REPORT INFORMATION
  Report Type: 
  Country: None (occurrence: None)
  Receive Date: 20080416
  Receipt Date: 20080327
  Transmission Date: 20081010
  Serious: Yes (Death)
  Sender: FDA-Public Use
  Company Number: US-BAYER-200816478GPV

PATIENT

DRUGS (4)
  1. FLUDARABINE [Suspect]
     Indication: HAEMATOLOGICAL MALIGNANCY
     Route: 042
  2. ALEMTUZUMAB [Suspect]
     Indication: HAEMATOLOGICAL MALIGNANCY
     Route: 065
  3. BUSULFAN [Suspect]
     Indication: HAEMATOLOGICAL MALIGNANCY
     Route: 042
  4. TACROLIMUS [Concomitant]
     Indication: PROPHYLAXIS AGAINST GRAFT VERSUS HOST DISEASE

REACTIONS (1)
  - VENOOCCLUSIVE LIVER DISEASE [None]
